FAERS Safety Report 16123481 (Version 2)
Quarter: 2019Q2

REPORT INFORMATION
  Report Type: Spontaneous
  Country: GB (occurrence: GB)
  Receive Date: 20190327
  Receipt Date: 20190507
  Transmission Date: 20190711
  Serious: Yes (Hospitalization, Other)
  Sender: FDA-Public Use
  Company Number: PHHY2019GB066971

PATIENT
  Age: 58 Year
  Sex: Male
  Weight: 120 kg

DRUGS (15)
  1. ATORVASTATIN [Concomitant]
     Active Substance: ATORVASTATIN
     Indication: PRODUCT USED FOR UNKNOWN INDICATION
     Dosage: UNK (TAKE ONE DAILY)
     Route: 065
  2. SPIRONOLACTONE. [Concomitant]
     Active Substance: SPIRONOLACTONE
     Indication: PRODUCT USED FOR UNKNOWN INDICATION
     Dosage: UNK (ONE TO BE TAKEN EVERY MORNING)
     Route: 065
  3. WARFARIN [Concomitant]
     Active Substance: WARFARIN
     Dosage: UNK (3 MG, TAKE AS DIRECTED)
     Route: 065
  4. WARFARIN [Concomitant]
     Active Substance: WARFARIN
     Dosage: UNK (5 MG, TAKE ONE AS DIRECTED)
     Route: 065
  5. INSULIN [Concomitant]
     Active Substance: INSULIN NOS
     Indication: PRODUCT USED FOR UNKNOWN INDICATION
     Route: 065
  6. ENTRESTO [Suspect]
     Active Substance: SACUBITRIL\VALSARTAN
     Indication: CARDIAC FAILURE CHRONIC
     Dosage: 100 MG (49/51 MG), BID
     Route: 048
     Dates: start: 20190221, end: 20190306
  7. WARFARIN [Concomitant]
     Active Substance: WARFARIN
     Indication: THROMBOSIS PROPHYLAXIS
     Dosage: UNK (1 MG, TAKE ONE AS DIRECTED)
     Route: 065
  8. CALCEOS [Concomitant]
     Active Substance: CALCIUM CARBONATE\CHOLECALCIFEROL
     Indication: PRODUCT USED FOR UNKNOWN INDICATION
     Dosage: UNK (TAKE ONE TWICE DAILY)
     Route: 065
  9. EZETIMIBE. [Concomitant]
     Active Substance: EZETIMIBE
     Indication: PRODUCT USED FOR UNKNOWN INDICATION
     Dosage: UNK (TAKE ONE DAILY)
     Route: 065
  10. TRAMADOL. [Concomitant]
     Active Substance: TRAMADOL
     Indication: PRODUCT USED FOR UNKNOWN INDICATION
     Dosage: UNK (ONE OR TWO TO BE TAKEN EVERY 4 HOURS WHWN NECESSARY)
     Route: 065
  11. COSMOCOL [Concomitant]
     Indication: PRODUCT USED FOR UNKNOWN INDICATION
     Dosage: TAKE HALF TO ONE SACHET NOCTE AS REQUIRED
     Route: 048
  12. LIRAGLUTIDE [Concomitant]
     Active Substance: LIRAGLUTIDE
     Indication: PRODUCT USED FOR UNKNOWN INDICATION
     Dosage: 0.6 MG, QD (FOR 1 WEEK)
     Route: 058
  13. BISOPROLOL [Concomitant]
     Active Substance: BISOPROLOL
     Indication: PRODUCT USED FOR UNKNOWN INDICATION
     Dosage: UNK (ONE TO BE TAKEN EACH DAY)
     Route: 065
  14. FUROSEMIDE. [Concomitant]
     Active Substance: FUROSEMIDE
     Indication: PRODUCT USED FOR UNKNOWN INDICATION
     Dosage: UNK (TWO BD)
     Route: 065
  15. METFORMIN [Concomitant]
     Active Substance: METFORMIN HYDROCHLORIDE
     Indication: PRODUCT USED FOR UNKNOWN INDICATION
     Dosage: UNK (TWO TO BE TAKEN THREE TIMES DAILY)
     Route: 065

REACTIONS (3)
  - Endocarditis [Unknown]
  - Renal impairment [Recovered/Resolved]
  - Dyspnoea [Unknown]

NARRATIVE: CASE EVENT DATE: 20190306
